FAERS Safety Report 6041737-0 (Version None)
Quarter: 2009Q1

REPORT INFORMATION
  Report Type: 
  Country: None (occurrence: None)
  Receive Date: 20090116
  Receipt Date: 20090106
  Transmission Date: 20090719
  Serious: Yes (Hospitalization)
  Sender: FDA-Public Use
  Company Number: IE-PFIZER INC-2009152078

PATIENT

DRUGS (5)
  1. LYRICA [Suspect]
     Indication: GENERALISED ANXIETY DISORDER
     Route: 048
     Dates: start: 20081030, end: 20081126
  2. HALCION [Concomitant]
  3. ZISPIN [Concomitant]
  4. XANAX [Concomitant]
  5. FOLIC ACID [Concomitant]

REACTIONS (3)
  - CONTUSION [None]
  - PURPURA [None]
  - THROMBOCYTOPENIA [None]
